FAERS Safety Report 20748894 (Version 1)
Quarter: 2022Q2

REPORT INFORMATION
  Report Type: Other
  Country: US (occurrence: None)
  Receive Date: 20220426
  Receipt Date: 20220426
  Transmission Date: 20220721
  Serious: Yes (Other)
  Sender: FDA-Public Use
  Company Number: US-Nivagen-000014

PATIENT
  Age: 47 Year
  Sex: Male

DRUGS (4)
  1. SUCCINYLCHOLINE [Suspect]
     Active Substance: SUCCINYLCHOLINE
     Indication: Relaxation therapy
  2. HALOTHANE [Suspect]
     Active Substance: HALOTHANE
     Indication: Induction and maintenance of anaesthesia
  3. ATROPINE [Concomitant]
     Active Substance: ATROPINE
     Indication: Anaesthetic premedication
     Dosage: 0.8 MG
     Route: 030
  4. SUCCINYLCHOLINE [Suspect]
     Active Substance: SUCCINYLCHOLINE
     Indication: Relaxation therapy

REACTIONS (4)
  - Respiratory acidosis [Recovered/Resolved]
  - Hypotension [Recovered/Resolved]
  - Hyperthermia [Recovered/Resolved]
  - Metabolic acidosis [Recovered/Resolved]
